FAERS Safety Report 23100174 (Version 2)
Quarter: 2024Q1

REPORT INFORMATION
  Report Type: Spontaneous
  Country: BR (occurrence: BR)
  Receive Date: 20231024
  Receipt Date: 20240122
  Transmission Date: 20240410
  Serious: Yes (Other)
  Sender: FDA-Public Use
  Company Number: BR-AMERICAN REGENT INC-2023002460

PATIENT
  Age: 97 Year
  Sex: Female

DRUGS (4)
  1. VENOFER [Suspect]
     Active Substance: IRON SUCROSE
     Indication: Anaemia
     Dosage: 100 MILLIGRAM, 1 IN 1 WK (1 AMPOULE)
     Dates: start: 202310, end: 202310
  2. INDAPAMIDE [Concomitant]
     Active Substance: INDAPAMIDE
     Indication: Blood pressure management
     Dosage: 1 DOSAGE FORM (1 DOSAGE FORMS, 1 IN 1 D)
     Route: 065
  3. SERTRALINE HYDROCHLORIDE [Concomitant]
     Active Substance: SERTRALINE HYDROCHLORIDE
     Indication: Product used for unknown indication
     Dosage: 1 DOSAGE FORM (1 DOSAGE FORMS,1 IN 1 D)
     Route: 065
  4. DIGESAN [BROMOPRIDE] [Concomitant]
     Indication: Dyspepsia
     Dosage: 1 DOSAGE FORM (WHEN NECESSARY)
     Route: 065

REACTIONS (2)
  - Vein rupture [Recovered/Resolved]
  - Vein disorder [Unknown]

NARRATIVE: CASE EVENT DATE: 20231001
